FAERS Safety Report 6200480-5 (Version None)
Quarter: 2009Q2

REPORT INFORMATION
  Report Type: 
  Country: None (occurrence: None)
  Receive Date: 20090522
  Receipt Date: 20090514
  Transmission Date: 20091009
  Serious: Yes (Other)
  Sender: FDA-Public Use
  Company Number: US-AMGEN-COG342935

PATIENT
  Sex: Female

DRUGS (1)
  1. ENBREL [Suspect]
     Indication: PSORIASIS
     Route: 058
     Dates: start: 20080825, end: 20090501

REACTIONS (4)
  - DIZZINESS [None]
  - GASTRIC ULCER [None]
  - PANIC ATTACK [None]
  - TACHYCARDIA [None]
